FAERS Safety Report 6851626-7 (Version None)
Quarter: 2010Q3

REPORT INFORMATION
  Report Type: 
  Country: None (occurrence: None)
  Receive Date: 20100717
  Receipt Date: 20080128
  Transmission Date: 20110219
  Serious: No
  Sender: FDA-Public Use
  Company Number: US-PFIZER INC-2008006992

PATIENT
  Sex: Female
  Weight: 77.1 kg

DRUGS (13)
  1. CHANTIX [Suspect]
     Indication: SMOKING CESSATION THERAPY
     Dates: start: 20070101, end: 20070101
  2. SPIRIVA [Concomitant]
     Route: 055
  3. MOMETASONE FUROATE [Concomitant]
     Route: 055
  4. ALBUTEROL [Concomitant]
     Route: 055
  5. OESTRIOL + OESTRADIOL [Concomitant]
  6. CARAFATE [Concomitant]
  7. PROTONIX [Concomitant]
  8. ALL OTHER THERAPEUTIC PRODUCTS [Concomitant]
  9. LYRICA [Concomitant]
  10. PROVIGIL [Concomitant]
  11. REQUIP [Concomitant]
  12. ZANAFLEX [Concomitant]
  13. EFFEXOR [Concomitant]

REACTIONS (3)
  - DRUG INEFFECTIVE [None]
  - NAUSEA [None]
  - TOBACCO USER [None]
